FAERS Safety Report 9201045 (Version 2)
Quarter: 2013Q2

REPORT INFORMATION
  Report Type: Report from Study
  Country: CA (occurrence: CA)
  Receive Date: 20130401
  Receipt Date: 20130405
  Transmission Date: 20140414
  Serious: Yes (Other)
  Sender: FDA-Public Use
  Company Number: CA-JNJFOC-20130315506

PATIENT
  Age: 11 Year
  Sex: Female
  Weight: 32 kg

DRUGS (1)
  1. REMICADE [Suspect]
     Indication: JUVENILE IDIOPATHIC ARTHRITIS
     Dosage: EVERY 6 (UNIT UNSPECIFIED)
     Route: 042
     Dates: start: 201206

REACTIONS (2)
  - Fall [Recovered/Resolved]
  - Clavicle fracture [Recovered/Resolved]
